FAERS Safety Report 25993536 (Version 2)
Quarter: 2025Q4

REPORT INFORMATION
  Report Type: Report from Study
  Country: US (occurrence: US)
  Receive Date: 20251104
  Receipt Date: 20251112
  Transmission Date: 20260117
  Serious: No
  Sender: ELI LILLY AND COMPANY
  Company Number: US-ELI_LILLY_AND_COMPANY-US202510030461

PATIENT
  Age: 56 Year
  Sex: Female

DRUGS (2)
  1. EBGLYSS [Suspect]
     Active Substance: LEBRIKIZUMAB-LBKZ
     Indication: Dermatitis atopic
     Dosage: 500 MG, (STARTER DOSE, ONE IN EACH LEG)
     Route: 065
     Dates: start: 20251010
  2. EBGLYSS [Suspect]
     Active Substance: LEBRIKIZUMAB-LBKZ
     Indication: Dermatitis atopic
     Dosage: 500 MG, (STARTER DOSE, ONE IN EACH LEG)
     Route: 065
     Dates: start: 20251010

REACTIONS (1)
  - Injection site pain [Unknown]

NARRATIVE: CASE EVENT DATE: 20251010
